FAERS Safety Report 5989190-7 (Version None)
Quarter: 2008Q4

REPORT INFORMATION
  Report Type: 
  Country: None (occurrence: None)
  Receive Date: 20081210
  Receipt Date: 20081121
  Transmission Date: 20090506
  Serious: Yes (Death, Other)
  Sender: FDA-Public Use
  Company Number: US-MERCK-0811USA03765

PATIENT
  Age: 75 Year
  Sex: Male

DRUGS (6)
  1. JANUVIA [Suspect]
     Indication: DIABETES MELLITUS
     Route: 048
     Dates: start: 20080401, end: 20080601
  2. SYNTHROID [Concomitant]
     Route: 065
  3. XANAX [Concomitant]
     Route: 065
  4. ACTOS [Concomitant]
     Route: 065
  5. COREG [Concomitant]
     Route: 065
  6. ASPIRIN [Concomitant]
     Route: 065

REACTIONS (2)
  - DEATH [None]
  - PANCREATITIS [None]
